FAERS Safety Report 9701623 (Version 2)
Quarter: 2013Q4

REPORT INFORMATION
  Report Type: Spontaneous
  Country: US (occurrence: US)
  Receive Date: 20131119
  Receipt Date: 20131119
  Transmission Date: 20140711
  Serious: Yes (Other)
  Sender: FDA-Public Use
  Company Number: US-ORACLE-2011S1000044

PATIENT
  Sex: Male

DRUGS (11)
  1. KRYSTEXXA INJECTION [Suspect]
     Indication: GOUT
     Route: 042
     Dates: start: 20110615, end: 20110615
  2. KRYSTEXXA INJECTION [Suspect]
     Indication: GOUT
     Route: 042
     Dates: start: 20110629, end: 20110629
  3. BENADRYL /01563701/ [Concomitant]
     Indication: PREMEDICATION
     Route: 042
     Dates: start: 20110615, end: 20110615
  4. BENADRYL /01563701/ [Concomitant]
     Indication: PREMEDICATION
     Route: 042
     Dates: start: 20110629, end: 20110629
  5. SOLU MEDROL [Concomitant]
     Indication: PREMEDICATION
     Route: 042
     Dates: start: 20110615, end: 20110615
  6. SOLU MEDROL [Concomitant]
     Indication: PREMEDICATION
     Route: 042
     Dates: start: 20110629, end: 20110629
  7. TYLENOL /00020001/ [Concomitant]
     Indication: PREMEDICATION
     Route: 048
     Dates: start: 20110615, end: 20110615
  8. TYLENOL /00020001/ [Concomitant]
     Indication: PREMEDICATION
     Route: 048
     Dates: start: 20110629, end: 20110629
  9. NABUMETONE [Concomitant]
  10. HYDROCODONE [Concomitant]
     Indication: GOUT
  11. PREDNISONE [Concomitant]
     Route: 048

REACTIONS (2)
  - Infusion related reaction [Recovered/Resolved]
  - Therapeutic response decreased [Unknown]
